FAERS Safety Report 5059632-2 (Version None)
Quarter: 2006Q3

REPORT INFORMATION
  Report Type: 
  Country: None (occurrence: None)
  Receive Date: 20060724
  Receipt Date: 20060103
  Transmission Date: 20061208
  Serious: No
  Sender: FDA-Public Use
  Company Number: US-GLAXOSMITHKLINE-A0587522A

PATIENT
  Age: 63 Year
  Sex: Male

DRUGS (4)
  1. HYCAMTIN [Suspect]
     Indication: DRUG USE FOR UNKNOWN INDICATION
     Route: 042
  2. NYSTATIN SOLUTION [Concomitant]
  3. FENTANYL [Concomitant]
  4. CORTISONE [Concomitant]
     Route: 048

REACTIONS (1)
  - MOUTH ULCERATION [None]
